FAERS Safety Report 4895532-6 (Version None)
Quarter: 2006Q1

REPORT INFORMATION
  Report Type: 
  Country: None (occurrence: None)
  Receive Date: 20060125
  Receipt Date: 20060112
  Transmission Date: 20060701
  Serious: Yes (Other)
  Sender: FDA-Public Use
  Company Number: 2006005011

PATIENT
  Age: 66 Year
  Sex: Male
  Weight: 106.5953 kg

DRUGS (7)
  1. NORVASC [Suspect]
     Indication: HYPERTENSION
     Dosage: SEE IMAGE
     Route: 048
     Dates: start: 19980101
  2. NORVASC [Suspect]
     Indication: HYPERTENSION
     Dosage: SEE IMAGE
     Route: 048
     Dates: start: 20050101
  3. NEXIUM [Concomitant]
  4. MULTIVITAMIN (ASCORBIC ACID, ERGOCALCIFEROL, FOLIC ACID, NICOTINAMIDE, [Concomitant]
  5. VITAMIN D SUPPLEMENT (ERGOCALCIFEROL) [Concomitant]
  6. SELENIUM (SELENIUM) [Concomitant]
  7. VITAMINS (VITAMIN B) [Concomitant]

REACTIONS (5)
  - BLOOD PRESSURE INCREASED [None]
  - ERECTILE DYSFUNCTION [None]
  - EXTRASYSTOLES [None]
  - SLEEP DISORDER [None]
  - STRESS [None]
